FAERS Safety Report 6334507 (Version 1)
Quarter: 2020Q3

REPORT INFORMATION
  Report Type: Spontaneous
  Country: GB (occurrence: GB)
  Receive Date: 20070615
  Receipt Date: 20070615
  Transmission Date: 20201105
  Serious: Yes (Other)
  Sender: FDA-Public Use
  Company Number: GB-ROCHE-501989

PATIENT
  Age: 53 Year
  Sex: Female
  Weight: 65.1 kg

DRUGS (2)
  1. CALCIUM CARBONATE. [Concomitant]
     Active Substance: CALCIUM CARBONATE
     Indication: OSTEOPOROSIS
     Route: 048
  2. IBANDRONIC ACID. [Suspect]
     Active Substance: IBANDRONIC ACID
     Indication: OSTEOPOROSIS
     Route: 042
     Dates: start: 20070208, end: 20070208

REACTIONS (3)
  - Ocular hyperaemia [Recovered/Resolved]
  - Influenza like illness [Recovered/Resolved]
  - Eye discharge [Recovered/Resolved]

NARRATIVE: CASE EVENT DATE: 20070208
